FAERS Safety Report 13289310 (Version 1)
Quarter: 2017Q1

REPORT INFORMATION
  Report Type: Spontaneous
  Country: US (occurrence: US)
  Receive Date: 20170303
  Receipt Date: 20170303
  Transmission Date: 20170428
  Serious: Yes (Hospitalization, Other)
  Sender: FDA-Public Use
  Company Number: US-009507513-1702USA011755

PATIENT
  Age: 18 Year
  Sex: Male

DRUGS (10)
  1. CYCLOPHOSPHAMIDE. [Concomitant]
     Active Substance: CYCLOPHOSPHAMIDE
     Indication: B-CELL TYPE ACUTE LEUKAEMIA
     Dosage: UNK, CYCLICAL
     Dates: start: 2014
  2. HYDROCORTONE [Suspect]
     Active Substance: HYDROCORTISONE
     Indication: B-CELL TYPE ACUTE LEUKAEMIA
     Dosage: UNK
     Route: 048
     Dates: start: 2011, end: 201309
  3. METHOTREXATE. [Suspect]
     Active Substance: METHOTREXATE
     Dosage: UNK
     Dates: start: 2014
  4. CYTARABINE. [Concomitant]
     Active Substance: CYTARABINE
     Indication: B-CELL TYPE ACUTE LEUKAEMIA
     Dosage: UNK
     Dates: start: 2014
  5. VINCRISTINE [Concomitant]
     Active Substance: VINCRISTINE
     Indication: B-CELL TYPE ACUTE LEUKAEMIA
     Dosage: UNK
     Dates: start: 201502
  6. HEXADROL [Suspect]
     Active Substance: DEXAMETHASONE
     Dosage: UNK
     Dates: start: 201502
  7. PREDNISONE. [Suspect]
     Active Substance: PREDNISONE
     Indication: B-CELL TYPE ACUTE LEUKAEMIA
     Dosage: UNK
     Route: 048
     Dates: start: 2011, end: 201309
  8. METHOTREXATE. [Suspect]
     Active Substance: METHOTREXATE
     Indication: B-CELL TYPE ACUTE LEUKAEMIA
     Dosage: UNK
     Dates: start: 2011, end: 201309
  9. VINCRISTINE [Concomitant]
     Active Substance: VINCRISTINE
     Dosage: UNK
     Dates: start: 201602
  10. HEXADROL [Suspect]
     Active Substance: DEXAMETHASONE
     Indication: B-CELL TYPE ACUTE LEUKAEMIA
     Dosage: UNK, CYCLICAL
     Dates: start: 2011, end: 201309

REACTIONS (4)
  - Leukaemia recurrent [Recovered/Resolved]
  - Leukaemia recurrent [Recovered/Resolved]
  - Leukaemia recurrent [Recovered/Resolved]
  - Leukaemia recurrent [Unknown]

NARRATIVE: CASE EVENT DATE: 201406
